FAERS Safety Report 10220050 (Version 1)
Quarter: 2014Q2

REPORT INFORMATION
  Report Type: Spontaneous
  Country: US (occurrence: US)
  Receive Date: 20140605
  Receipt Date: 20140605
  Transmission Date: 20141212
  Serious: Yes (Hospitalization, Other)
  Sender: FDA-Public Use
  Company Number: US-JNJFOC-20140603157

PATIENT
  Age: 68 Year
  Sex: Male

DRUGS (1)
  1. IMBRUVICA [Suspect]
     Indication: CHRONIC LYMPHOCYTIC LEUKAEMIA
     Route: 048
     Dates: start: 201404, end: 20140516

REACTIONS (3)
  - Bladder mass [Unknown]
  - Haematuria [Unknown]
  - Disease progression [Unknown]
